FAERS Safety Report 7885445-X (Version None)
Quarter: 2011Q4

REPORT INFORMATION
  Report Type: 
  Country: None (occurrence: None)
  Receive Date: 20111102
  Receipt Date: 20111018
  Transmission Date: 20120403
  Serious: Yes (Hospitalization, Congenital Anomaly, Other)
  Sender: FDA-Public Use
  Company Number: US-ROCHE-1005944

PATIENT

DRUGS (8)
  1. OMALIZUMAB [Suspect]
     Indication: ASTHMA
     Dosage: MOST RECENT DOSE 14/MAR/2011
     Route: 015
     Dates: start: 20060324
  2. XOPENEX [Concomitant]
     Indication: PROPHYLAXIS
     Dates: start: 20110601
  3. FLOVENT [Concomitant]
     Indication: BRONCHIAL HYPERREACTIVITY
     Dates: start: 20110817
  4. SINGULAIR [Concomitant]
     Indication: BRONCHIAL HYPERREACTIVITY
     Route: 048
     Dates: start: 20110817
  5. PREVACID [Concomitant]
     Route: 048
     Dates: start: 20110407
  6. ATROVENT [Concomitant]
     Indication: TRACHEOMALACIA
     Dates: start: 20110601
  7. ZANTAC [Concomitant]
     Route: 048
     Dates: start: 20110329, end: 20110407
  8. PREVACID [Concomitant]
     Dosage: DOSE 15 MI, TDD 30 MI
     Route: 048
     Dates: start: 20110323, end: 20110329

REACTIONS (3)
  - CONSTIPATION [None]
  - LARYNGOMALACIA [None]
  - MATERNAL EXPOSURE DURING PREGNANCY [None]
